FAERS Safety Report 25119644 (Version 2)
Quarter: 2025Q2

REPORT INFORMATION
  Report Type: Spontaneous
  Country: US (occurrence: US)
  Receive Date: 20250325
  Receipt Date: 20250407
  Transmission Date: 20250717
  Serious: No
  Sender: BIOGEN
  Company Number: US-BIOGEN-2021BI01067354

PATIENT
  Sex: Female

DRUGS (8)
  1. VUMERITY [Suspect]
     Active Substance: DIROXIMEL FUMARATE
     Indication: Multiple sclerosis
     Route: 050
     Dates: start: 20210903
  2. VUMERITY [Suspect]
     Active Substance: DIROXIMEL FUMARATE
     Route: 050
     Dates: end: 2023
  3. GABAPENTIN [Concomitant]
     Active Substance: GABAPENTIN
     Route: 050
  4. BUSPAR [Concomitant]
     Active Substance: BUSPIRONE HYDROCHLORIDE
     Route: 050
  5. TYLENOL [Concomitant]
     Active Substance: ACETAMINOPHEN
     Route: 050
  6. IBUPROFEN [Concomitant]
     Active Substance: IBUPROFEN
     Indication: Arthritis
     Route: 050
  7. NORETHINDRONE [Concomitant]
     Active Substance: NORETHINDRONE
     Route: 050
  8. VITAMINS [Concomitant]
     Active Substance: VITAMINS
     Route: 050

REACTIONS (15)
  - Intentional product misuse [Not Recovered/Not Resolved]
  - Product dose omission in error [Unknown]
  - Accidental underdose [Recovered/Resolved]
  - Gastrointestinal inflammation [Not Recovered/Not Resolved]
  - Weight loss poor [Unknown]
  - Rash macular [Not Recovered/Not Resolved]
  - Gastrointestinal disorder [Not Recovered/Not Resolved]
  - Abdominal distension [Not Recovered/Not Resolved]
  - Flatulence [Not Recovered/Not Resolved]
  - Multiple sclerosis [Not Recovered/Not Resolved]
  - Gastrointestinal pain [Unknown]
  - Abdominal pain lower [Unknown]
  - Flushing [Not Recovered/Not Resolved]
  - Abdominal pain upper [Not Recovered/Not Resolved]
  - Diarrhoea [Recovered/Resolved]

NARRATIVE: CASE EVENT DATE: 20210101
